FAERS Safety Report 8825251 (Version 2)
Quarter: 2012Q4

REPORT INFORMATION
  Report Type: 
  Country: US (occurrence: US)
  Receive Date: 20121004
  Receipt Date: 20121022
  Transmission Date: 20130627
  Serious: Yes (Death, Other)
  Sender: FDA-Public Use
  Company Number: US-ROCHE-1101949

PATIENT
  Sex: Male

DRUGS (2)
  1. RITUXAN [Suspect]
     Indication: DIFFUSE LARGE B-CELL LYMPHOMA
     Route: 042
  2. BENADRYL [Concomitant]
     Route: 042

REACTIONS (4)
  - Death [Fatal]
  - Chills [Unknown]
  - Tremor [Unknown]
  - Dyspnoea [Unknown]
